FAERS Safety Report 6814105-9 (Version None)
Quarter: 2010Q3

REPORT INFORMATION
  Report Type: 
  Country: None (occurrence: None)
  Receive Date: 20100702
  Receipt Date: 20091019
  Transmission Date: 20110219
  Serious: No
  Sender: FDA-Public Use
  Company Number: A0812392A

PATIENT
  Age: 69 Year
  Sex: Female

DRUGS (3)
  1. ADVAIR DISKUS 100/50 [Suspect]
     Indication: ASTHMA
     Dosage: 1PUFF TWICE PER DAY
     Route: 055
     Dates: start: 20090701
  2. VITAMIN D [Concomitant]
  3. BENADRYL [Concomitant]

REACTIONS (1)
  - ORAL PRURITUS [None]
